FAERS Safety Report 4517494-3 (Version None)
Quarter: 2004Q4

REPORT INFORMATION
  Report Type: 
  Country: None (occurrence: None)
  Receive Date: 20041027
  Receipt Date: 20040721
  Transmission Date: 20050328
  Serious: No
  Sender: FDA-Public Use
  Company Number: US084833

PATIENT
  Age: 51 Year
  Sex: Male
  Weight: 80 kg

DRUGS (4)
  1. SENSIPAR [Suspect]
     Indication: HYPERPARATHYROIDISM SECONDARY
     Dosage: 60 MG, 1 IN 1 DAYS, PO
     Route: 048
     Dates: start: 20040501
  2. SEVELAMER HCL [Concomitant]
  3. PHOSLO [Concomitant]
  4. PARICALCITOL [Concomitant]

REACTIONS (2)
  - BLOOD POTASSIUM INCREASED [None]
  - THERAPEUTIC RESPONSE DECREASED [None]
